FAERS Safety Report 5889682-5 (Version None)
Quarter: 2008Q3

REPORT INFORMATION
  Report Type: 
  Country: None (occurrence: None)
  Receive Date: 20080919
  Receipt Date: 20080910
  Transmission Date: 20090109
  Serious: Yes (Other)
  Sender: FDA-Public Use
  Company Number: US-JNJFOC-20080902897

PATIENT
  Sex: Female
  Weight: 88 kg

DRUGS (9)
  1. FENTANYL TRANSDERMAL SYSTEM [Suspect]
     Indication: ANKYLOSING SPONDYLITIS
     Route: 062
  2. FENTANYL TRANSDERMAL SYSTEM [Suspect]
     Indication: FIBROMYALGIA
     Route: 062
  3. FENTANYL TRANSDERMAL SYSTEM [Suspect]
     Indication: INTERVERTEBRAL DISC PROTRUSION
     Route: 062
  4. SYNTHROID [Concomitant]
     Indication: HYPOTHYROIDISM
     Route: 048
  5. AMBIEN CR [Concomitant]
     Indication: SLEEP DISORDER
     Dosage: ONCE AT BEDTIME
     Route: 048
  6. XANAX [Concomitant]
     Indication: PANIC ATTACK
     Dosage: AS NEEDED
     Route: 048
  7. CYMBALTA [Concomitant]
     Indication: DEPRESSION
     Route: 048
  8. TRAZODONE HCL [Concomitant]
     Indication: DEPRESSION
     Dosage: AT BEDTIME
     Route: 048
  9. UNSPECIFIED DRUGS [Concomitant]
     Route: 048

REACTIONS (4)
  - DRUG INEFFECTIVE [None]
  - INTENTIONAL DRUG MISUSE [None]
  - SUICIDAL IDEATION [None]
  - TREATMENT NONCOMPLIANCE [None]
